FAERS Safety Report 10272566 (Version 3)
Quarter: 2014Q3

REPORT INFORMATION
  Report Type: Spontaneous
  Country: FR (occurrence: None)
  Receive Date: 20140630
  Receipt Date: 20140918
  Transmission Date: 20150326
  Serious: Yes (Life-Threatening, Hospitalization)
  Sender: FDA-Public Use
  Company Number: 2014FR0271

PATIENT
  Age: 39 Year
  Sex: Male

DRUGS (7)
  1. DIFFU K (POTASSIUM CHLORIDE) (POTASSIUM CHLORIDE) [Concomitant]
     Active Substance: POTASSIUM CHLORIDE
  2. KINERET [Suspect]
     Active Substance: ANAKINRA
     Indication: JUVENILE IDIOPATHIC ARTHRITIS
     Dosage: 100 MG (100 MG, 1 IN 1 D), SUBCUTANEOUS ?
     Route: 058
     Dates: start: 20131109
  3. COLECALCIFEROL [Suspect]
     Active Substance: CHOLECALCIFEROL
     Indication: JUVENILE IDIOPATHIC ARTHRITIS
     Dosage: 1 DOSAGE FORMS (1 DOSAGE FORMS, 1 IN 1 D), ORAL
     Route: 048
     Dates: start: 20131109, end: 20131109
  4. GLUCOPHAGE [Suspect]
     Active Substance: METFORMIN HYDROCHLORIDE
     Indication: JUVENILE IDIOPATHIC ARTHRITIS
     Dosage: 1500 MG (500 MG, 3 IN 1 D), ORAL
     Route: 048
     Dates: start: 20131109
  5. ZOMETA [Suspect]
     Active Substance: ZOLEDRONIC ACID
     Indication: JUVENILE IDIOPATHIC ARTHRITIS
     Dosage: 4 MG (4 MG, 1 IN 1 D), INTRAVENOUS
     Route: 042
     Dates: start: 20131109, end: 20131109
  6. PREDNISONE (PREDNISONE) (PREDNISONE) [Suspect]
     Active Substance: PREDNISONE
     Indication: JUVENILE IDIOPATHIC ARTHRITIS
     Route: 048
     Dates: start: 20131112
  7. SOLU-MEDROL [Suspect]
     Active Substance: METHYLPREDNISOLONE SODIUM SUCCINATE
     Indication: JUVENILE IDIOPATHIC ARTHRITIS
     Dosage: 500 MG (500 MG, 1 IN 1 D), INTRAVENOUS
     Route: 042
     Dates: start: 20131109, end: 20131111

REACTIONS (3)
  - Thrombosis [None]
  - Coronary artery thrombosis [None]
  - Myocardial infarction [None]

NARRATIVE: CASE EVENT DATE: 20131114
